FAERS Safety Report 5245633-8 (Version None)
Quarter: 2007Q1

REPORT INFORMATION
  Report Type: 
  Country: None (occurrence: None)
  Receive Date: 20070223
  Receipt Date: 20070216
  Transmission Date: 20070707
  Serious: Yes (Other)
  Sender: FDA-Public Use
  Company Number: IN-ROXANE LABORATORIES, INC-2007-BP-02367RO

PATIENT
  Age: 32 Year
  Sex: Female

DRUGS (1)
  1. LIDOCAINE [Suspect]
     Indication: ANAESTHESIA

REACTIONS (7)
  - ABASIA [None]
  - DRUG ADMINISTRATION ERROR [None]
  - HYPOAESTHESIA [None]
  - LIMB DISCOMFORT [None]
  - MUSCULAR WEAKNESS [None]
  - PAIN [None]
  - PERONEAL NERVE PALSY [None]
